FAERS Safety Report 5675027-2 (Version None)
Quarter: 2008Q1

REPORT INFORMATION
  Report Type: 
  Country: None (occurrence: None)
  Receive Date: 20080320
  Receipt Date: 20080312
  Transmission Date: 20080703
  Serious: Yes (Hospitalization)
  Sender: FDA-Public Use
  Company Number: US-TEVA-168788USA

PATIENT
  Age: 2 Year
  Sex: Female

DRUGS (2)
  1. VALPROIC ACID 250 MG/ML SYRUP [Suspect]
     Indication: PETIT MAL EPILEPSY
     Dosage: 675 MG/DAY (33 MG/KG/DAY
  2. ZONISAMIDE [Concomitant]
     Indication: PETIT MAL EPILEPSY
     Dosage: 5 MG/KG/DAY

REACTIONS (2)
  - CYTOGENETIC ABNORMALITY [None]
  - LEUKAEMOID REACTION [None]
